FAERS Safety Report 5643330-8 (Version None)
Quarter: 2008Q1

REPORT INFORMATION
  Report Type: 
  Country: None (occurrence: None)
  Receive Date: 20080131
  Receipt Date: 20071126
  Transmission Date: 20080703
  Serious: Yes (Hospitalization)
  Sender: FDA-Public Use
  Company Number: 163-21880-07100304

PATIENT
  Age: 73 Year
  Sex: Male

DRUGS (3)
  1. REVLIMID [Suspect]
     Indication: MULTIPLE MYELOMA
     Dosage: 20 MG, 2 IN 1 D, ORAL; 25 MG, 1 IN 1 D, ORAL; 10 MG, DAILY FOR 21 DAYS, ORAL
     Route: 048
     Dates: start: 20070911, end: 20070901
  2. REVLIMID [Suspect]
     Indication: MULTIPLE MYELOMA
     Dosage: 20 MG, 2 IN 1 D, ORAL; 25 MG, 1 IN 1 D, ORAL; 10 MG, DAILY FOR 21 DAYS, ORAL
     Route: 048
     Dates: start: 20070901, end: 20071005
  3. REVLIMID [Suspect]
     Indication: MULTIPLE MYELOMA
     Dosage: 20 MG, 2 IN 1 D, ORAL; 25 MG, 1 IN 1 D, ORAL; 10 MG, DAILY FOR 21 DAYS, ORAL
     Route: 048
     Dates: start: 20071127

REACTIONS (5)
  - FATIGUE [None]
  - FEBRILE NEUTROPENIA [None]
  - INFECTION [None]
  - LABORATORY TEST ABNORMAL [None]
  - NEUTROPENIA [None]
